FAERS Safety Report 9393708 (Version 1)
Quarter: 2013Q3

REPORT INFORMATION
  Report Type: Spontaneous
  Country: GB (occurrence: GB)
  Receive Date: 20130710
  Receipt Date: 20130710
  Transmission Date: 20140515
  Serious: Yes (Other)
  Sender: FDA-Public Use
  Company Number: GB-TEVA-417126ISR

PATIENT
  Age: 71 Year
  Sex: Female
  Weight: 86.8 kg

DRUGS (18)
  1. SALBUTAMOL [Suspect]
     Indication: CHRONIC OBSTRUCTIVE PULMONARY DISEASE
     Dosage: NEBULISED THERAPY
     Route: 055
     Dates: start: 20130608, end: 20130608
  2. IPRATROPIUM [Suspect]
     Indication: CHRONIC OBSTRUCTIVE PULMONARY DISEASE
     Dosage: NEBULISED THERAPY
     Route: 055
     Dates: start: 20130608, end: 20130608
  3. ATORVASTATIN [Concomitant]
     Dosage: REPEAT
     Route: 048
  4. BENDROFLUMETHIAZIDE [Concomitant]
     Dosage: REPEAT
     Route: 048
  5. CLARITHROMYCIN [Concomitant]
     Dosage: ACUTE MEDICATION
     Route: 048
  6. OXYTETRACYCLINE [Concomitant]
     Dosage: ACUTE MEDICATION
     Route: 048
  7. PREDNISOLONE [Concomitant]
     Dosage: ACUTE MEDICATION
     Route: 048
  8. ZOPICLONE [Concomitant]
     Dosage: REPEAT
     Route: 048
  9. SERTRALINE [Concomitant]
     Route: 048
  10. SERETIDE [Concomitant]
     Route: 055
  11. GLANDOSANE [Concomitant]
     Route: 048
  12. HYPROMELLOSE [Concomitant]
     Route: 050
  13. CO-CODAMOL [Concomitant]
     Dosage: 30MG/500MG
     Route: 048
  14. MACROGOL [Concomitant]
     Route: 048
  15. TIOTROPIUM BROMIDE [Concomitant]
     Route: 055
  16. TERBUTALINE [Concomitant]
     Route: 055
  17. DOXYCYCLINE [Concomitant]
     Route: 048
  18. FLUCLOXACILLIN [Concomitant]
     Route: 048

REACTIONS (1)
  - Dysphagia [Recovered/Resolved]
